FAERS Safety Report 7411951-8 (Version None)
Quarter: 2011Q2

REPORT INFORMATION
  Report Type: 
  Country: None (occurrence: None)
  Receive Date: 20110413
  Receipt Date: 20110401
  Transmission Date: 20111010
  Serious: Yes (Death)
  Sender: FDA-Public Use
  Company Number: SI-AMGEN-SVNSP2011017576

PATIENT
  Age: 57 Year
  Sex: Female
  Weight: 80 kg

DRUGS (6)
  1. EPUFEN [Concomitant]
     Dosage: 125 A?G, UNK
     Route: 062
     Dates: start: 20110303, end: 20110325
  2. MIACALCIN [Concomitant]
     Dosage: UNK UNK, BID
     Route: 045
     Dates: start: 20110304, end: 20110324
  3. PROLIA [Suspect]
     Indication: HYPERCALCAEMIA
     Dosage: 60 MG, ONE TIME DOSE
     Route: 058
     Dates: start: 20110324, end: 20110324
  4. AREDIA [Concomitant]
     Dosage: 120 MG, UNK
     Route: 042
     Dates: start: 20110311, end: 20110321
  5. LENDACIN                           /00672201/ [Concomitant]
     Dosage: 2 G, UNK
     Route: 042
     Dates: start: 20110315, end: 20110324
  6. SEVREDOL [Concomitant]
     Dosage: 10 MG, UNK
     Route: 048
     Dates: start: 20110321, end: 20110324

REACTIONS (1)
  - DEATH [None]
